FAERS Safety Report 23858209 (Version 1)
Quarter: 2024Q2

REPORT INFORMATION
  Report Type: Spontaneous
  Country: US (occurrence: None)
  Receive Date: 20240514
  Receipt Date: 20240514
  Transmission Date: 20240716
  Serious: Yes (Other)
  Sender: FDA-Public Use
  Company Number: None

PATIENT
  Age: 59 Year
  Sex: Female
  Weight: 80.55 kg

DRUGS (3)
  1. OZEMPIC [Suspect]
     Active Substance: SEMAGLUTIDE
     Indication: Type 2 diabetes mellitus
     Dates: start: 20230202, end: 20231213
  2. FARXIGA [Concomitant]
     Active Substance: DAPAGLIFLOZIN PROPANEDIOL
  3. rosuvostatin [Concomitant]

REACTIONS (5)
  - Epiretinal membrane [None]
  - Ophthalmoplegia [None]
  - Macular degeneration [None]
  - Muscle spasms [None]
  - Vitreous floaters [None]

NARRATIVE: CASE EVENT DATE: 20230815
